FAERS Safety Report 6368141-X (Version None)
Quarter: 2009Q3

REPORT INFORMATION
  Report Type: 
  Country: None (occurrence: None)
  Receive Date: 20090922
  Receipt Date: 20090912
  Transmission Date: 20100115
  Serious: Yes (Hospitalization, Other)
  Sender: FDA-Public Use
  Company Number: US-AMGEN-QUU364460

PATIENT
  Sex: Male

DRUGS (2)
  1. ENBREL [Suspect]
     Indication: PSORIATIC ARTHROPATHY
     Route: 058
  2. ENBREL [Suspect]
     Indication: PSORIASIS

REACTIONS (7)
  - ARTHRALGIA [None]
  - DEPRESSED MOOD [None]
  - DYSPHAGIA [None]
  - GAIT DISTURBANCE [None]
  - HAEMATEMESIS [None]
  - OESOPHAGEAL HAEMORRHAGE [None]
  - PSORIASIS [None]
